FAERS Safety Report 16885896 (Version 1)
Quarter: 2019Q4

REPORT INFORMATION
  Report Type: Spontaneous
  Country: US (occurrence: US)
  Receive Date: 20190809
  Receipt Date: 20190809
  Transmission Date: 20200122
  Serious: Yes (Hospitalization)
  Sender: FDA-Public Use
  Company Number: None

PATIENT
  Age: 80 Year
  Sex: Female
  Weight: 45.8 kg

DRUGS (2)
  1. TAXOL [Suspect]
     Active Substance: PACLITAXEL
     Dates: end: 20180417
  2. CARBOPLATIN. [Suspect]
     Active Substance: CARBOPLATIN
     Dates: end: 20180417

REACTIONS (5)
  - Pleural effusion [None]
  - Hypoxia [None]
  - Dyspnoea [None]
  - Atelectasis [None]
  - Pulmonary thrombosis [None]

NARRATIVE: CASE EVENT DATE: 20190725
